FAERS Safety Report 20359573 (Version 1)
Quarter: 2022Q1

REPORT INFORMATION
  Report Type: Spontaneous
  Country: IR (occurrence: IR)
  Receive Date: 20220121
  Receipt Date: 20220121
  Transmission Date: 20220423
  Serious: Yes (Other)
  Sender: FDA-Public Use
  Company Number: None

PATIENT
  Age: 66 Year
  Sex: Male

DRUGS (12)
  1. MYCOPHENOLATE MOFETIL [Suspect]
     Active Substance: MYCOPHENOLATE MOFETIL
     Indication: Glomerulonephropathy
     Dosage: 1500 MILLIGRAM, EVERY 1 DAY
     Route: 065
  2. MYCOPHENOLATE MOFETIL [Suspect]
     Active Substance: MYCOPHENOLATE MOFETIL
     Indication: Glomerulonephritis membranous
  3. ASPIRIN [Concomitant]
     Active Substance: ASPIRIN
     Indication: Glomerulonephropathy
     Dosage: 80 MILLIGRAM, EVERY 1 DAY
     Route: 065
  4. ASPIRIN [Concomitant]
     Active Substance: ASPIRIN
     Indication: Glomerulonephritis membranous
  5. CHLORDIAZEPOXIDE [Concomitant]
     Active Substance: CHLORDIAZEPOXIDE
     Indication: Glomerulonephritis membranous
     Dosage: 5 MILLIGRAM, EVERY 1 DAY
     Route: 065
  6. CHLORDIAZEPOXIDE [Concomitant]
     Active Substance: CHLORDIAZEPOXIDE
     Indication: Glomerulonephropathy
  7. PREDNISOLONE [Concomitant]
     Active Substance: PREDNISOLONE
     Indication: Glomerulonephropathy
     Dosage: 100 MILLIGRAM, EVERY 1 DAY
     Route: 065
  8. PREDNISOLONE [Concomitant]
     Active Substance: PREDNISOLONE
     Indication: Glomerulonephritis membranous
  9. SPIRONOLACTONE [Concomitant]
     Active Substance: SPIRONOLACTONE
     Indication: Glomerulonephropathy
     Dosage: 100 MILLIGRAM, EVERY 1 DAY
     Route: 065
  10. SPIRONOLACTONE [Concomitant]
     Active Substance: SPIRONOLACTONE
     Indication: Glomerulonephritis membranous
  11. TAMSULOSIN [Concomitant]
     Active Substance: TAMSULOSIN
     Indication: Glomerulonephritis membranous
     Dosage: 0.8 MILLIGRAM, EVERY 1 DAY
     Route: 065
  12. TAMSULOSIN [Concomitant]
     Active Substance: TAMSULOSIN
     Indication: Glomerulonephropathy

REACTIONS (6)
  - Fall [Recovered/Resolved]
  - Functional gastrointestinal disorder [Recovered/Resolved]
  - Bladder dysfunction [Recovered/Resolved]
  - Neurotoxicity [Recovered/Resolved]
  - Peripheral sensory neuropathy [Recovered/Resolved]
  - Peripheral motor neuropathy [Recovered/Resolved]
